FAERS Safety Report 7802991-5 (Version None)
Quarter: 2011Q4

REPORT INFORMATION
  Report Type: 
  Country: None (occurrence: None)
  Receive Date: 20111007
  Receipt Date: 20111003
  Transmission Date: 20120403
  Serious: Yes (Death)
  Sender: FDA-Public Use
  Company Number: US-GILEAD-2011-0043933

PATIENT

DRUGS (3)
  1. VENTAVIS [Concomitant]
  2. LETAIRIS [Suspect]
     Indication: PULMONARY HYPERTENSION
     Route: 048
     Dates: start: 20100121, end: 20110827
  3. REVATIO [Concomitant]

REACTIONS (1)
  - PULMONARY HYPERTENSION [None]
